FAERS Safety Report 4941461-9 (Version None)
Quarter: 2006Q1

REPORT INFORMATION
  Report Type: 
  Country: None (occurrence: None)
  Receive Date: 20060313
  Receipt Date: 20051114
  Transmission Date: 20060701
  Serious: Yes (Hospitalization, Other)
  Sender: FDA-Public Use
  Company Number: US-MERCK-0511USA02770

PATIENT
  Age: 54 Year
  Sex: Male

DRUGS (1)
  1. VIOXX [Suspect]
     Route: 048

REACTIONS (26)
  - ANAEMIA [None]
  - ANAEMIA POSTOPERATIVE [None]
  - ANGINA UNSTABLE [None]
  - ANXIETY [None]
  - CARDIOVASCULAR DISORDER [None]
  - CEREBROVASCULAR ACCIDENT [None]
  - CHEST PAIN [None]
  - CORONARY ARTERY DISEASE [None]
  - CORONARY ARTERY OCCLUSION [None]
  - CORONARY ARTERY RESTENOSIS [None]
  - CORONARY ARTERY STENOSIS [None]
  - DEEP VEIN THROMBOSIS [None]
  - DIZZINESS [None]
  - DYSPNOEA [None]
  - EMOTIONAL DISTRESS [None]
  - HAEMATOCRIT DECREASED [None]
  - HAEMOGLOBIN DECREASED [None]
  - MENTAL DISORDER [None]
  - MYOCARDIAL INFARCTION [None]
  - PULMONARY EMBOLISM [None]
  - RENAL DISORDER [None]
  - RENAL FAILURE [None]
  - STENT OCCLUSION [None]
  - SYNCOPE [None]
  - THROMBOSIS [None]
  - VENTRICULAR TACHYCARDIA [None]
